FAERS Safety Report 5365400-4 (Version None)
Quarter: 2007Q2

REPORT INFORMATION
  Report Type: 
  Country: None (occurrence: None)
  Receive Date: 20070621
  Receipt Date: 20070615
  Transmission Date: 20071010
  Serious: Yes (Hospitalization, Other)
  Sender: FDA-Public Use
  Company Number: FR-ELI_LILLY_AND_COMPANY-FR200705002631

PATIENT
  Age: 51 Year
  Sex: Male

DRUGS (8)
  1. ZYPREXA [Suspect]
     Indication: MANIA
     Dosage: 10 MG, 2/D
     Route: 048
     Dates: start: 20070501, end: 20070503
  2. DEPAKOTE [Concomitant]
     Indication: MANIA
     Dosage: 250 MG, 3/D
     Route: 048
     Dates: start: 20070501, end: 20070503
  3. VALIUM [Concomitant]
     Indication: MANIA
     Dosage: 70 GTT, DAILY (1/D)
     Route: 048
     Dates: start: 20070501
  4. THERALENE [Concomitant]
     Indication: INSOMNIA
     Dosage: 80 GTT, AS NEEDED
     Route: 048
     Dates: start: 20070501
  5. RIVOTRIL [Concomitant]
     Indication: AGITATION
     Dosage: UNK, AS NEEDED
     Route: 030
     Dates: start: 20070501
  6. INSULIN NOVOMIX /02607201/ [Concomitant]
     Indication: DIABETES MELLITUS INSULIN-DEPENDENT
     Dosage: 68 IU, DAILY (1/D)
     Route: 058
     Dates: end: 20070503
  7. INSULIN NOVOMIX /02607201/ [Concomitant]
     Route: 042
     Dates: start: 20070503, end: 20070503
  8. INSULIN NOVOMIX /02607201/ [Concomitant]
     Dosage: 58 U, DAILY (1/D)
     Route: 058
     Dates: start: 20070504

REACTIONS (4)
  - DIABETIC KETOACIDOSIS [None]
  - HEPATOCELLULAR DAMAGE [None]
  - RHABDOMYOLYSIS [None]
  - WHITE BLOOD CELL COUNT INCREASED [None]
